FAERS Safety Report 7239478-7 (Version None)
Quarter: 2011Q1

REPORT INFORMATION
  Report Type: 
  Country: None (occurrence: None)
  Receive Date: 20110121
  Receipt Date: 20110119
  Transmission Date: 20110831
  Serious: Yes (Death, Other)
  Sender: FDA-Public Use
  Company Number: US-ABBOTT-10P-163-0642979-00

PATIENT
  Sex: Male

DRUGS (1)
  1. SYNTHROID [Suspect]
     Indication: THYROID CANCER

REACTIONS (2)
  - HYPOPHAGIA [None]
  - DEATH [None]
